FAERS Safety Report 12924553 (Version 2)
Quarter: 2016Q4

REPORT INFORMATION
  Report Type: Spontaneous
  Country: JP (occurrence: JP)
  Receive Date: 20161109
  Receipt Date: 20161122
  Transmission Date: 20170207
  Serious: Yes (Death, Other)
  Sender: FDA-Public Use
  Company Number: JP-ROCHE-1852557

PATIENT
  Age: 45 Year
  Sex: Female

DRUGS (3)
  1. METHYLPREDNISOLONE. [Concomitant]
     Active Substance: METHYLPREDNISOLONE
     Indication: IMMUNOSUPPRESSION
     Dosage: DOSAGE IS UNCERTAIN.
     Route: 065
  2. CICLOSPORIN [Concomitant]
     Active Substance: CYCLOSPORINE
     Indication: IMMUNOSUPPRESSION
     Dosage: DOSAGE IS UNCERTAIN.
     Route: 065
  3. CELLCEPT [Suspect]
     Active Substance: MYCOPHENOLATE MOFETIL\MYCOPHENOLATE MOFETIL HYDROCHLORIDE
     Indication: IMMUNOSUPPRESSION
     Dosage: DOSAGE IS UNCERTAIN.
     Route: 048

REACTIONS (5)
  - Disseminated intravascular coagulation [Fatal]
  - Cytomegalovirus infection [Unknown]
  - Multiple organ dysfunction syndrome [Fatal]
  - Varicella [Unknown]
  - Urinary tract infection [Unknown]
